FAERS Safety Report 21818906 (Version 9)
Quarter: 2023Q1

REPORT INFORMATION
  Report Type: Report from Study
  Country: DE (occurrence: DE)
  Receive Date: 20230104
  Receipt Date: 20230316
  Transmission Date: 20230418
  Serious: Yes (Life-Threatening, Hospitalization)
  Sender: FDA-Public Use
  Company Number: DE-002147023-NVSC2023DE000653

PATIENT
  Age: 63 Year
  Sex: Male
  Weight: 98 kg

DRUGS (9)
  1. NISEVOKITUG [Suspect]
     Active Substance: NISEVOKITUG
     Indication: Colorectal cancer metastatic
     Dosage: 2100 MG
     Route: 042
     Dates: start: 20221019
  2. FLUOROURACIL [Suspect]
     Active Substance: FLUOROURACIL
     Indication: Colorectal cancer metastatic
     Dosage: 900 MG
     Route: 042
     Dates: start: 20221019
  3. FLUOROURACIL [Suspect]
     Active Substance: FLUOROURACIL
     Dosage: 5400 MG
     Route: 042
     Dates: start: 20221019
  4. IRINOTECAN [Suspect]
     Active Substance: IRINOTECAN
     Indication: Colorectal cancer metastatic
     Dosage: 400 MG
     Route: 042
     Dates: start: 20221019
  5. BEVACIZUMAB [Suspect]
     Active Substance: BEVACIZUMAB
     Indication: Colorectal cancer metastatic
     Dosage: 500 MG
     Route: 042
     Dates: start: 20221019
  6. TISLELIZUMAB [Suspect]
     Active Substance: TISLELIZUMAB
     Indication: Colorectal cancer metastatic
     Dosage: 300 MG
     Route: 042
     Dates: start: 20221019
  7. LEVOTHYROXINE SODIUM [Concomitant]
     Active Substance: LEVOTHYROXINE SODIUM
     Indication: General physical condition
     Dosage: UNK
     Route: 065
  8. EDOXABAN TOSYLATE [Concomitant]
     Active Substance: EDOXABAN TOSYLATE
     Indication: General physical condition
     Dosage: UNK
     Route: 065
     Dates: start: 20210830
  9. MAPROTILINE ^NEURAX^ [Concomitant]
     Indication: General physical condition
     Dosage: UNK
     Route: 065

REACTIONS (1)
  - Febrile neutropenia [Recovered/Resolved]

NARRATIVE: CASE EVENT DATE: 20221231
